FAERS Safety Report 11738337 (Version 2)
Quarter: 2016Q1

REPORT INFORMATION
  Report Type: Spontaneous
  Country: DE (occurrence: DE)
  Receive Date: 20151113
  Receipt Date: 20160131
  Transmission Date: 20160525
  Serious: Yes (Life-Threatening, Hospitalization)
  Sender: FDA-Public Use
  Company Number: DE-009507513-1511DEU005870

PATIENT
  Age: 31 Year
  Sex: Male
  Weight: 120 kg

DRUGS (5)
  1. FORXIGA [Suspect]
     Active Substance: DAPAGLIFLOZIN
     Indication: TYPE 2 DIABETES MELLITUS
     Dosage: 10 MG, EVERY DAY (CUMULATIVE DOSE NUMBER TO FIRST REACTION 40MG 1 IN 1 DAY)
     Route: 048
     Dates: start: 20151022
  2. METFORMIN [Suspect]
     Active Substance: METFORMIN HYDROCHLORIDE
     Indication: TYPE 2 DIABETES MELLITUS
     Dosage: 500 MG, QD (CUMULATIVE DOSE NUMBER TO FIRST REACTION 2000MG 1 IN 1 DAY)
     Route: 048
     Dates: start: 20151022
  3. PANTOZOL [Concomitant]
     Active Substance: PANTOPRAZOLE SODIUM
     Indication: PROPHYLAXIS AGAINST GASTROINTESTINAL ULCER
     Dosage: 40 MG, BID (CUMULATIVE DOSE NUMBER TO FIRST REACTION 320MG 1 IN 1 DAY)
     Route: 048
     Dates: start: 20151022
  4. JANUVIA [Suspect]
     Active Substance: SITAGLIPTIN PHOSPHATE
     Indication: TYPE 2 DIABETES MELLITUS
     Dosage: 100 MG, EVERY DAY (CUMULATIVE DOSE NUMBER TO FIRST REACTION 400MG 1 IN 1 DAY)
     Route: 048
     Dates: start: 20151022
  5. BEZAFIBRATE [Concomitant]
     Active Substance: BEZAFIBRATE
     Indication: HYPERTRIGLYCERIDAEMIA
     Dosage: 400 MG, QD (CUMULATIVE DOSE NUMBER TO FIRST REACTION 1600MG 1 IN 1 DAY)
     Route: 048
     Dates: start: 20151022

REACTIONS (2)
  - Somnolence [Recovering/Resolving]
  - Ketoacidosis [Recovering/Resolving]

NARRATIVE: CASE EVENT DATE: 20151025
